FAERS Safety Report 9711798 (Version 2)
Quarter: 2013Q4

REPORT INFORMATION
  Report Type: Spontaneous
  Country: US (occurrence: US)
  Receive Date: 20131126
  Receipt Date: 20131126
  Transmission Date: 20140711
  Serious: No
  Sender: FDA-Public Use
  Company Number: US-BRISTOL-MYERS SQUIBB COMPANY-19106582

PATIENT
  Age: 80 Year
  Sex: Female
  Weight: 58.96 kg

DRUGS (2)
  1. BYDUREON [Suspect]
     Indication: TYPE 2 DIABETES MELLITUS
     Route: 058
     Dates: start: 20130228
  2. METFORMIN HCL [Suspect]

REACTIONS (5)
  - Underdose [Unknown]
  - Injection site extravasation [Unknown]
  - Blood glucose increased [Unknown]
  - Weight decreased [Unknown]
  - Injection site mass [Recovering/Resolving]
